FAERS Safety Report 6636831-7 (Version None)
Quarter: 2010Q1

REPORT INFORMATION
  Report Type: 
  Country: None (occurrence: None)
  Receive Date: 20100316
  Receipt Date: 20100302
  Transmission Date: 20100710
  Serious: Yes (Other)
  Sender: FDA-Public Use
  Company Number: DE-MYLANLABS-2010S1003450

PATIENT
  Age: 23 Year
  Sex: Female

DRUGS (9)
  1. BUPROPION HCL [Suspect]
     Indication: DEPRESSION
     Dates: start: 20070101
  2. BUPROPION HCL [Suspect]
     Indication: PANIC ATTACK
     Dates: start: 20070101
  3. BUPROPION HCL [Suspect]
     Indication: DRUG ABUSE
     Dates: start: 20070101
  4. BUPROPION HCL [Suspect]
     Dates: start: 20070101
  5. BUPROPION HCL [Suspect]
     Dates: start: 20070101
  6. BUPROPION HCL [Suspect]
     Dates: start: 20070101
  7. BUPROPION HCL [Suspect]
     Route: 045
     Dates: start: 20070101
  8. BUPROPION HCL [Suspect]
     Route: 045
     Dates: start: 20070101
  9. BUPROPION HCL [Suspect]
     Route: 045
     Dates: start: 20070101

REACTIONS (5)
  - AUTONOMIC NERVOUS SYSTEM IMBALANCE [None]
  - DRUG ABUSE [None]
  - INCORRECT ROUTE OF DRUG ADMINISTRATION [None]
  - RHINALGIA [None]
  - TACHYCARDIA [None]
